FAERS Safety Report 6988515 (Version 5)
Quarter: 2013Q4

REPORT INFORMATION
  Report Type: Spontaneous
  Country: US (occurrence: US)
  Receive Date: 20090507
  Receipt Date: 20131113
  Transmission Date: 20140711
  Serious: Yes (Other)
  Sender: FDA-Public Use
  Company Number: US-PFIZER INC-2009204929

PATIENT
  Age: 17 Year
  Sex: Female
  Weight: 34 kg

DRUGS (7)
  1. ZOLOFT [Suspect]
     Indication: OBSESSIVE-COMPULSIVE DISORDER
     Dosage: 50 MG, DAILY
     Dates: start: 200707
  2. ZOLOFT [Suspect]
     Dosage: 100 MG, DAILY
  3. ZOLOFT [Suspect]
     Dosage: 150 MG, DAILY
  4. ZOLOFT [Suspect]
     Dosage: 200 MG, DAILY
  5. ZOLOFT [Suspect]
     Dosage: 250 MG, DAILY
  6. TOPAMAX [Concomitant]
     Dosage: 25 MG, 2X/DAY
  7. TRILEPTAL [Concomitant]
     Dosage: 450 MG, 2X/DAY

REACTIONS (8)
  - Intentional self-injury [Unknown]
  - Convulsion [Unknown]
  - Hypokinesia [Unknown]
  - Bruxism [Unknown]
  - Dental caries [Unknown]
  - Stress [Unknown]
  - Disturbance in attention [Unknown]
  - Pain in jaw [Unknown]
